FAERS Safety Report 21185035 (Version 1)
Quarter: 2022Q3

REPORT INFORMATION
  Report Type: Spontaneous
  Country: US (occurrence: US)
  Receive Date: 20220808
  Receipt Date: 20220808
  Transmission Date: 20221026
  Serious: No
  Sender: FDA-Public Use
  Company Number: US-ELI_LILLY_AND_COMPANY-US202208002873

PATIENT
  Sex: Female
  Weight: 79.38 kg

DRUGS (1)
  1. CYMBALTA [Suspect]
     Active Substance: DULOXETINE HYDROCHLORIDE
     Indication: Neuralgia
     Dosage: 60 MG, UNKNOWN
     Route: 065
     Dates: start: 20150302

REACTIONS (2)
  - Hepatic enzyme increased [Unknown]
  - Drug hypersensitivity [Unknown]
